FAERS Safety Report 20578652 (Version 1)
Quarter: 2022Q1

REPORT INFORMATION
  Report Type: Report from Study
  Country: US (occurrence: US)
  Receive Date: 20220310
  Receipt Date: 20220310
  Transmission Date: 20220424
  Serious: Yes (Death)
  Sender: FDA-Public Use
  Company Number: US-Taiho Oncology Inc-EU-2022-00593

PATIENT
  Age: 51 Year
  Sex: Female
  Weight: 76.726 kg

DRUGS (9)
  1. LONSURF [Suspect]
     Active Substance: TIPIRACIL HYDROCHLORIDE\TRIFLURIDINE
     Indication: Colon cancer
     Dosage: CYCLE UNKNOWN
     Route: 048
     Dates: start: 20220202
  2. GLUCOSAMINE SULFATE [Concomitant]
     Active Substance: GLUCOSAMINE SULFATE
  3. VITAMINS [Concomitant]
     Active Substance: VITAMINS
  4. PROBIOTICS NOS [Concomitant]
     Active Substance: PROBIOTICS NOS
     Dosage: 10 B CELL
  5. PYRIDOXINE [Concomitant]
     Active Substance: PYRIDOXINE
  6. LEXAPRO [Concomitant]
     Active Substance: ESCITALOPRAM OXALATE
  7. ZINC [Concomitant]
     Active Substance: ZINC
  8. IMODIUM [Concomitant]
     Active Substance: LOPERAMIDE HYDROCHLORIDE
  9. ETODOLAC [Concomitant]
     Active Substance: ETODOLAC

REACTIONS (1)
  - Death [Fatal]

NARRATIVE: CASE EVENT DATE: 20220227
